FAERS Safety Report 7724539 (Version 3)
Quarter: 2013Q2

REPORT INFORMATION
  Report Type: Report from Study
  Country: US (occurrence: US)
  Receive Date: 20101221
  Receipt Date: 20130628
  Transmission Date: 20140414
  Serious: Yes (Hospitalization)
  Sender: FDA-Public Use
  Company Number: US-BRISTOL-MYERS SQUIBB COMPANY-15440662

PATIENT
  Age: 69 Year
  Sex: Female
  Weight: 61.3 kg

DRUGS (20)
  1. PACLITAXEL [Suspect]
     Indication: NON-SMALL CELL LUNG CANCER
     Dosage: DAY 1AND 8
     Route: 042
     Dates: start: 20101119
  2. CARBOPLATIN [Suspect]
     Indication: NON-SMALL CELL LUNG CANCER
     Dosage: 1DF:AUC=6,DAY 1 OF 21DAY CYCLE
     Route: 042
     Dates: start: 20101119
  3. DIPHENHYDRAMINE [Concomitant]
     Dates: start: 20101119
  4. ZANTAC [Concomitant]
     Dates: start: 20001119
  5. MELATONIN [Concomitant]
     Dates: start: 2009
  6. INDOCIN [Concomitant]
     Dates: start: 2005
  7. FISH OIL [Concomitant]
     Dates: start: 2005
  8. XANAX [Concomitant]
     Dates: start: 2007
  9. HYDROCODONE [Concomitant]
     Dates: start: 2010
  10. DEXAMETHASONE [Concomitant]
     Dates: start: 20101119
  11. LISINOPRIL [Concomitant]
     Dates: start: 1997
  12. ATENOLOL [Concomitant]
     Dates: start: 1997
  13. COSOPT [Concomitant]
     Dates: start: 1991
  14. CARTIA [Concomitant]
     Dates: start: 1997
  15. MULTIVITAMINS + IRON [Concomitant]
     Dates: start: 2005
  16. MULTIVITAMINS + CALCIUM [Concomitant]
     Dates: start: 2005
  17. MAGNESIUM [Concomitant]
  18. VITAMIN B COMPLEX [Concomitant]
     Dates: start: 2005
  19. AMITRIPTYLINE [Concomitant]
     Dates: start: 2009
  20. COLCHICINE [Concomitant]

REACTIONS (1)
  - Renal failure acute [Recovered/Resolved]
